FAERS Safety Report 4457064-9 (Version None)
Quarter: 2004Q3

REPORT INFORMATION
  Report Type: 
  Country: None (occurrence: None)
  Receive Date: 20040830
  Receipt Date: 20040428
  Transmission Date: 20050211
  Serious: No
  Sender: FDA-Public Use
  Company Number: 205852

PATIENT
  Age: 29 Year
  Sex: Female

DRUGS (7)
  1. XOLAIR [Suspect]
     Indication: ASTHMA
     Dosage: 375 MG, Q2W
     Dates: start: 20031120, end: 20031202
  2. ZYRTEC [Concomitant]
  3. FLONASE [Concomitant]
  4. PATANOL [Concomitant]
  5. ALBUTEROL (ALBUTEROL, ALBUTEROL SULFATE) [Concomitant]
  6. ADVAIR (SALMETEROL XINAFOATE, FLUTICASONE PROPIONATE) [Concomitant]
  7. BENADRYL (DIPHENYDRAMINE HYDROCHLORIDE) [Concomitant]

REACTIONS (1)
  - PREGNANCY [None]
